FAERS Safety Report 10557352 (Version 1)
Quarter: 2014Q4

REPORT INFORMATION
  Report Type: Spontaneous
  Country: US (occurrence: None)
  Receive Date: 20141029
  Receipt Date: 20141029
  Transmission Date: 20150529
  Serious: Yes (Other)
  Sender: FDA-Public Use
  Company Number: FK201404503

PATIENT
  Age: 35 Month
  Sex: Female

DRUGS (4)
  1. CISPLATIN (CISPLATIN) [Concomitant]
     Active Substance: CISPLATIN
  2. CARBOPLATIN (MANUFACTURER UNKNOWN) (CARBOPLATIN) (CARBOPLATIN) [Suspect]
     Active Substance: CARBOPLATIN
     Indication: NEUROFIBROMATOSIS
     Dosage: CYCLICAL
  3. OXALIPLATIN (OXALIPLATIN) [Concomitant]
     Active Substance: OXALIPLATIN
  4. VINCRISTINE (VINCRISTINE) (VINCRISTINE) [Suspect]
     Active Substance: VINCRISTINE
     Indication: NEUROFIBROMATOSIS
     Dosage: CYCLICAL

REACTIONS (4)
  - Back pain [None]
  - Chromaturia [None]
  - Haemolytic anaemia [None]
  - Abdominal pain [None]
